FAERS Safety Report 11358193 (Version 1)
Quarter: 2015Q3

REPORT INFORMATION
  Report Type: Spontaneous
  Country: US (occurrence: US)
  Receive Date: 20150803
  Receipt Date: 20150803
  Transmission Date: 20151125
  Serious: Yes (Other)
  Sender: FDA-Public Use
  Company Number: US-ELI_LILLY_AND_COMPANY-US200807005245

PATIENT
  Age: 8 Year
  Sex: Female
  Weight: 26.3 kg

DRUGS (2)
  1. ABILIFY [Concomitant]
     Active Substance: ARIPIPRAZOLE
     Indication: AUTISM
     Dosage: 10 MG, UNK
     Dates: start: 20070910
  2. STRATTERA [Suspect]
     Active Substance: ATOMOXETINE HYDROCHLORIDE
     Indication: AUTISM SPECTRUM DISORDER
     Dosage: 25 MG, DAILY (1/D)
     Dates: start: 20080704, end: 20080724

REACTIONS (4)
  - Depressed mood [Unknown]
  - Suicidal ideation [Unknown]
  - Lethargy [Unknown]
  - Decreased interest [Recovered/Resolved]

NARRATIVE: CASE EVENT DATE: 20080724
